FAERS Safety Report 10334150 (Version 2)
Quarter: 2014Q4

REPORT INFORMATION
  Report Type: Spontaneous
  Country: IT (occurrence: IT)
  Receive Date: 20140723
  Receipt Date: 20141106
  Transmission Date: 20150528
  Serious: Yes (Other)
  Sender: FDA-Public Use
  Company Number: IT-ROCHE-1437280

PATIENT
  Age: 22 Year
  Sex: Female
  Weight: 62 kg

DRUGS (1)
  1. HERCEPTIN [Suspect]
     Active Substance: TRASTUZUMAB
     Indication: BREAST CANCER
     Route: 042
     Dates: start: 20140612, end: 20140612

REACTIONS (6)
  - Vertigo [Recovering/Resolving]
  - Chills [Recovering/Resolving]
  - Hyperhidrosis [Recovering/Resolving]
  - Hyperpyrexia [Recovering/Resolving]
  - Muscle spasms [Recovering/Resolving]
  - Vomiting [Recovering/Resolving]

NARRATIVE: CASE EVENT DATE: 20140612
